FAERS Safety Report 5669855-7 (Version None)
Quarter: 2008Q1

REPORT INFORMATION
  Report Type: 
  Country: None (occurrence: None)
  Receive Date: 20080317
  Receipt Date: 20080305
  Transmission Date: 20080703
  Serious: Yes (Life-Threatening, Other)
  Sender: FDA-Public Use
  Company Number: JP-PFIZER INC-2008018315

PATIENT
  Sex: Male
  Weight: 64 kg

DRUGS (2)
  1. UNASYN [Suspect]
     Indication: INFECTION
     Route: 042
     Dates: start: 20080215, end: 20080215
  2. HANP [Concomitant]
     Route: 042
     Dates: start: 20080214, end: 20080220

REACTIONS (4)
  - ANAPHYLACTIC SHOCK [None]
  - BLOOD PRESSURE DECREASED [None]
  - PRURITUS [None]
  - SHOCK [None]
